FAERS Safety Report 19803174 (Version 1)
Quarter: 2021Q3

REPORT INFORMATION
  Report Type: Spontaneous
  Country: CN (occurrence: CN)
  Receive Date: 20210908
  Receipt Date: 20210908
  Transmission Date: 20211014
  Serious: Yes (Other)
  Sender: FDA-Public Use
  Company Number: CN-LEO PHARMA-338631

PATIENT
  Age: 39 Year
  Sex: Male

DRUGS (1)
  1. DAIVONEX [Suspect]
     Active Substance: CALCIPOTRIENE
     Indication: PSORIASIS
     Dosage: 15G/TUBE
     Route: 061
     Dates: start: 202108, end: 20210830

REACTIONS (1)
  - Application site infection [Not Recovered/Not Resolved]
